FAERS Safety Report 6530166-9 (Version None)
Quarter: 2009Q4

REPORT INFORMATION
  Report Type: 
  Country: None (occurrence: None)
  Receive Date: 20091231
  Receipt Date: 20091229
  Transmission Date: 20100525
  Serious: Yes (Life-Threatening, Hospitalization)
  Sender: FDA-Public Use
  Company Number: 2009SP038315

PATIENT
  Sex: Female

DRUGS (14)
  1. MIRTAZAPINE [Suspect]
     Indication: DRUG USE FOR UNKNOWN INDICATION
     Dosage: 15 MG;QD;PO
     Route: 048
     Dates: start: 20091009, end: 20091012
  2. PRAZEPAM [Suspect]
     Indication: DRUG USE FOR UNKNOWN INDICATION
     Dates: start: 20091009, end: 20091012
  3. FUNGIZONE [Concomitant]
  4. NEXIUM [Concomitant]
  5. KARDEGIC [Concomitant]
  6. RISPERDAL [Concomitant]
  7. SEROPLEX [Concomitant]
  8. TARDYFERON [Concomitant]
  9. TRIATEC [Concomitant]
  10. LOVENOX [Concomitant]
  11. CACIT D3 [Concomitant]
  12. CLAMOXYL [Concomitant]
  13. MEPROBAMATE [Concomitant]
  14. DOLIPRANE [Concomitant]

REACTIONS (5)
  - LARYNGEAL DYSPNOEA [None]
  - NECK PAIN [None]
  - SPEECH DISORDER [None]
  - SPINAL COMPRESSION FRACTURE [None]
  - TONGUE OEDEMA [None]
